FAERS Safety Report 9176290 (Version 1)
Quarter: 2013Q1

REPORT INFORMATION
  Report Type: Spontaneous
  Country: US (occurrence: US)
  Receive Date: 20130321
  Receipt Date: 20130321
  Transmission Date: 20140127
  Serious: No
  Sender: FDA-Public Use
  Company Number: US-009507513-1303USA007651

PATIENT
  Sex: 0
  Weight: 74.83 kg

DRUGS (1)
  1. DECADRON [Suspect]

REACTIONS (2)
  - Flushing [Unknown]
  - Pruritus [Unknown]
